FAERS Safety Report 4947047-4 (Version None)
Quarter: 2006Q1

REPORT INFORMATION
  Report Type: 
  Country: None (occurrence: None)
  Receive Date: 20060314
  Receipt Date: 20060308
  Transmission Date: 20060701
  Serious: Yes (Hospitalization)
  Sender: FDA-Public Use
  Company Number: US-2006-005106

PATIENT
  Age: 45 Year
  Sex: Female

DRUGS (2)
  1. CLIMARA [Suspect]
     Indication: MENOPAUSAL SYMPTOMS
     Dosage: 0.05 + 0.0375 MG/D, CONT, TRANSDERMAL
     Route: 062
     Dates: start: 20040601, end: 20060222
  2. ESTROGENS SOL/INJ [Suspect]

REACTIONS (3)
  - HEADACHE [None]
  - NAUSEA [None]
  - TEMPOROMANDIBULAR JOINT SYNDROME [None]
